FAERS Safety Report 14656381 (Version 1)
Quarter: 2018Q1

REPORT INFORMATION
  Report Type: Spontaneous
  Country: GR (occurrence: GR)
  Receive Date: 20180319
  Receipt Date: 20180319
  Transmission Date: 20180509
  Serious: Yes (Hospitalization, Other)
  Sender: FDA-Public Use
  Company Number: GR-BAYER-2018-035985

PATIENT
  Age: 38 Year
  Sex: Female

DRUGS (2)
  1. MIRENA [Suspect]
     Active Substance: LEVONORGESTREL
     Indication: UTERINE HAEMORRHAGE
  2. MIRENA [Suspect]
     Active Substance: LEVONORGESTREL
     Indication: UTERINE HAEMORRHAGE
     Dosage: 20 MCG/24HR, CONT
     Route: 015
     Dates: start: 201707, end: 2018

REACTIONS (7)
  - Pelvic mass [None]
  - Device dislocation [None]
  - Vaginal haemorrhage [Recovered/Resolved]
  - Device use issue [None]
  - Pyrexia [Recovered/Resolved]
  - Vaginal infection [Recovered/Resolved]
  - Off label use of device [None]

NARRATIVE: CASE EVENT DATE: 201707
